FAERS Safety Report 4804020-4 (Version None)
Quarter: 2005Q4

REPORT INFORMATION
  Report Type: 
  Country: None (occurrence: None)
  Receive Date: 20051014
  Receipt Date: 20051004
  Transmission Date: 20060501
  Serious: Yes (Hospitalization)
  Sender: FDA-Public Use
  Company Number: PHO 2005-028

PATIENT
  Age: 72 Year
  Sex: Male

DRUGS (1)
  1. PHOTOFRIN [Suspect]
     Indication: OESOPHAGEAL SQUAMOUS CELL CARCINOMA RECURRENT
     Dosage: 2 MG/KG IV
     Route: 042
     Dates: start: 19971001

REACTIONS (6)
  - DYSPHAGIA [None]
  - EXTRADURAL ABSCESS [None]
  - FISTULA [None]
  - ODYNOPHAGIA [None]
  - OESOPHAGEAL DISORDER [None]
  - QUADRIPLEGIA [None]
